FAERS Safety Report 23966240 (Version 2)
Quarter: 2024Q2

REPORT INFORMATION
  Report Type: Spontaneous
  Country: CH (occurrence: CH)
  Receive Date: 20240612
  Receipt Date: 20240620
  Transmission Date: 20240716
  Serious: Yes (Other)
  Sender: FDA-Public Use
  Company Number: CH-ROCHE-3580274

PATIENT
  Age: 75 Year

DRUGS (1)
  1. ALTEPLASE [Suspect]
     Active Substance: ALTEPLASE
     Indication: Pulmonary embolism
     Route: 065

REACTIONS (4)
  - Pulmonary thrombosis [Recovered/Resolved]
  - Right ventricular dilatation [Recovered/Resolved]
  - Cardiac dysfunction [Recovered/Resolved]
  - Pulmonary artery occlusion [Recovered/Resolved]
